FAERS Safety Report 22676675 (Version 3)
Quarter: 2023Q4

REPORT INFORMATION
  Report Type: Spontaneous
  Country: US (occurrence: US)
  Receive Date: 20230706
  Receipt Date: 20231128
  Transmission Date: 20240109
  Serious: Yes (Other)
  Sender: FDA-Public Use
  Company Number: US-PFIZER INC-PV202300115107

PATIENT
  Age: 74 Year
  Sex: Female

DRUGS (6)
  1. OXALIPLATIN [Suspect]
     Active Substance: OXALIPLATIN
     Indication: Pancreatic carcinoma
     Dosage: 70 MG/M2, EVERY 2 WEEKS
     Route: 042
  2. OXALIPLATIN [Suspect]
     Active Substance: OXALIPLATIN
     Dosage: 130 MG/M2, EVERY 3 WEEKS (OVER 2 H)
     Route: 042
  3. CAPECITABINE [Concomitant]
     Active Substance: CAPECITABINE
     Indication: Pancreatic carcinoma
     Dosage: 1000 MG, 2X/DAY,2/3 WEEKS
     Route: 048
  4. CAPECITABINE [Concomitant]
     Active Substance: CAPECITABINE
     Dosage: 1000 MG, 2X/DAY, EVERY 2/3 WEEKS,
     Route: 048
  5. IRINOTECAN [Concomitant]
     Active Substance: IRINOTECAN
     Indication: Pancreatic carcinoma
     Dosage: 125 MG/M2, EVERY 2 WEEKS
     Route: 042
  6. ASPIRIN [Concomitant]
     Active Substance: ASPIRIN
     Indication: Cerebrovascular accident prophylaxis
     Dosage: UNK

REACTIONS (2)
  - Cerebrovascular accident [Recovered/Resolved]
  - Off label use [Unknown]
